FAERS Safety Report 25225290 (Version 2)
Quarter: 2025Q2

REPORT INFORMATION
  Report Type: Spontaneous
  Country: US (occurrence: US)
  Receive Date: 20250422
  Receipt Date: 20250506
  Transmission Date: 20250717
  Serious: Yes (Hospitalization)
  Sender: CATALYST PHARMA
  Company Number: US-CATALYSTPHARMACEUTICALPARTNERS-US-CATA-25-00434

PATIENT
  Sex: Male

DRUGS (1)
  1. FYCOMPA [Suspect]
     Active Substance: PERAMPANEL
     Indication: Product used for unknown indication
     Dosage: 6 MG TABLET - TAKE 1 TABLET BY MOUTH EVERY DAY
     Route: 048

REACTIONS (7)
  - Hospitalisation [Unknown]
  - Hospitalisation [Unknown]
  - Hospitalisation [Unknown]
  - Product use issue [Unknown]
  - Drooling [Unknown]
  - Feeling abnormal [Unknown]
  - Hypoaesthesia [Unknown]

NARRATIVE: CASE EVENT DATE: 20250101
